FAERS Safety Report 18651038 (Version 2)
Quarter: 2020Q4

REPORT INFORMATION
  Report Type: Spontaneous
  Country: US (occurrence: US)
  Receive Date: 20201222
  Receipt Date: 20201224
  Transmission Date: 20210114
  Serious: No
  Sender: FDA-Public Use
  Company Number: US-SA-2020SA365300

PATIENT

DRUGS (1)
  1. LANTUS [Suspect]
     Active Substance: INSULIN GLARGINE
     Indication: TYPE 2 DIABETES MELLITUS
     Dosage: 10 IU, QD
     Dates: start: 20201214

REACTIONS (6)
  - Underdose [Unknown]
  - Suspected product quality issue [Unknown]
  - Blood glucose increased [Unknown]
  - Injection site indentation [Unknown]
  - Injection site bruising [Unknown]
  - Injection site extravasation [Unknown]
